FAERS Safety Report 14100945 (Version 1)
Quarter: 2017Q4

REPORT INFORMATION
  Report Type: Spontaneous
  Country: US (occurrence: None)
  Receive Date: 20171017
  Receipt Date: 20171017
  Transmission Date: 20180321
  Serious: Yes (Hospitalization)
  Sender: FDA-Public Use
  Company Number: None

PATIENT
  Age: 56 Year
  Sex: Female
  Weight: 86.18 kg

DRUGS (8)
  1. MULTI VITAMIN [Concomitant]
     Active Substance: VITAMINS
  2. VITAMIN D3 [Concomitant]
     Active Substance: CHOLECALCIFEROL
  3. LOSARTAN. [Concomitant]
     Active Substance: LOSARTAN
  4. ULORIC [Concomitant]
     Active Substance: FEBUXOSTAT
  5. CLONAZEPAM. [Concomitant]
     Active Substance: CLONAZEPAM
  6. ESTRACE [Concomitant]
     Active Substance: ESTRADIOL
  7. DICYCLOMIDE [Concomitant]
  8. CHLORZOXAZONE. [Suspect]
     Active Substance: CHLORZOXAZONE
     Indication: BACK PAIN
     Dosage: 500MG 90 TAKE 4 TIMES A DAY 18 TABLETS
     Dates: start: 20170913, end: 20170917

REACTIONS (6)
  - Diarrhoea [None]
  - Haematochezia [None]
  - Vomiting [None]
  - Gastrointestinal haemorrhage [None]
  - Somnolence [None]
  - Dizziness [None]

NARRATIVE: CASE EVENT DATE: 20170916
